FAERS Safety Report 8804126 (Version 5)
Quarter: 2013Q4

REPORT INFORMATION
  Report Type: Spontaneous
  Country: DE (occurrence: DE)
  Receive Date: 20120924
  Receipt Date: 20131004
  Transmission Date: 20140711
  Serious: No
  Sender: FDA-Public Use
  Company Number: DE-GLAXOSMITHKLINE-D0077108A

PATIENT
  Sex: Female

DRUGS (3)
  1. VIANI FORTE [Suspect]
     Indication: ASTHMA
     Dosage: 1BLS TWICE PER DAY
     Route: 055
  2. SALBUTAMOL [Suspect]
     Route: 055
  3. PREDNISOLONE [Concomitant]
     Dosage: 30MG PER DAY
     Route: 065

REACTIONS (4)
  - Asthma [Unknown]
  - Pulmonary function test decreased [Unknown]
  - Haemoptysis [Unknown]
  - Upper respiratory tract irritation [Unknown]
